FAERS Safety Report 24150916 (Version 1)
Quarter: 2024Q3

REPORT INFORMATION
  Report Type: Spontaneous
  Country: US (occurrence: None)
  Receive Date: 20240729
  Receipt Date: 20240729
  Transmission Date: 20241017
  Serious: No
  Sender: Public
  Company Number: None

PATIENT
  Age: 40 Year
  Sex: Male
  Weight: 150.75 kg

DRUGS (4)
  1. PRIVIGEN [Suspect]
     Active Substance: HUMAN IMMUNOGLOBULIN G
     Indication: Chronic inflammatory demyelinating polyradiculoneuropathy
     Dosage: 75 G GRAM(S) EVERY 2 WEEKS INTRAVENOUS DRIP
     Route: 041
     Dates: start: 20240725
  2. TYLENOL [Concomitant]
     Active Substance: ACETAMINOPHEN
     Dates: start: 20240725
  3. DIPHEHYDRAMINE [Concomitant]
     Dates: start: 20240725
  4. SOLUMEDROL [Concomitant]
     Dates: start: 20240725

REACTIONS (4)
  - Chest discomfort [None]
  - Blood pressure increased [None]
  - Chest discomfort [None]
  - Infusion related reaction [None]

NARRATIVE: CASE EVENT DATE: 20240725
